APPROVED DRUG PRODUCT: AMLODIPINE BESYLATE
Active Ingredient: AMLODIPINE BESYLATE
Strength: EQ 5MG BASE
Dosage Form/Route: TABLET;ORAL
Application: A078573 | Product #002
Applicant: TORRENT PHARMACEUTICALS LTD
Approved: Sep 22, 2008 | RLD: No | RS: No | Type: DISCN